FAERS Safety Report 4390947-7 (Version None)
Quarter: 2004Q3

REPORT INFORMATION
  Report Type: 
  Country: None (occurrence: None)
  Receive Date: 20040702
  Receipt Date: 20040702
  Transmission Date: 20050211
  Serious: No
  Sender: FDA-Public Use
  Company Number: None

PATIENT
  Sex: Female
  Weight: 82 kg

DRUGS (2)
  1. DEFEROXAMINE - ABBOT 500MG [Suspect]
     Indication: MYELODYSPLASTIC SYNDROME
     Dosage: 2460 MG QD CONTINUOUS SQ
     Route: 058
     Dates: start: 20040523, end: 20040622
  2. DEFEROXAMINE  - ABBOTT 2 GM [Suspect]

REACTIONS (6)
  - INFUSION SITE ERYTHEMA [None]
  - INFUSION SITE PAIN [None]
  - INFUSION SITE REACTION [None]
  - SCAB [None]
  - SWELLING [None]
  - URINE ANALYSIS ABNORMAL [None]
